FAERS Safety Report 24235238 (Version 1)
Quarter: 2024Q3

REPORT INFORMATION
  Report Type: Report from Study
  Country: GB (occurrence: GB)
  Receive Date: 20240821
  Receipt Date: 20240821
  Transmission Date: 20241017
  Serious: Yes (Hospitalization, Other)
  Sender: SANDOZ
  Company Number: GB-002147023-NVSC2020GB225502

PATIENT
  Age: 59 Year
  Sex: Male

DRUGS (2)
  1. HYRIMOZ [Suspect]
     Active Substance: ADALIMUMAB-ADAZ
     Indication: Psoriasis
     Dosage: 40 MG (EOW), 40 MG/0.8 ML PRE-FILLED PEN
     Route: 065
     Dates: start: 20190504
  2. HYRIMOZ [Suspect]
     Active Substance: ADALIMUMAB-ADAZ
     Dosage: 40 MG, Q2W (EOW), 40MG/0.4ML PRE-FILLED PENS
     Route: 058

REACTIONS (5)
  - Infection [Unknown]
  - COVID-19 [Unknown]
  - Pyrexia [Unknown]
  - Cough [Unknown]
  - Influenza like illness [Unknown]

NARRATIVE: CASE EVENT DATE: 20200625
